FAERS Safety Report 21671773 (Version 2)
Quarter: 2023Q2

REPORT INFORMATION
  Report Type: Report from Study
  Country: GB (occurrence: GB)
  Receive Date: 20221202
  Receipt Date: 20230615
  Transmission Date: 20230722
  Serious: Yes (Other)
  Sender: FDA-Public Use
  Company Number: GB-002147023-NVSC2022GB275401

PATIENT
  Age: 49 Year
  Sex: Male

DRUGS (2)
  1. KESIMPTA [Suspect]
     Active Substance: OFATUMUMAB
     Indication: Relapsing-remitting multiple sclerosis
     Dosage: 20 MG, QW
     Route: 058
     Dates: start: 20221124
  2. KESIMPTA [Suspect]
     Active Substance: OFATUMUMAB
     Indication: Multiple sclerosis
     Dosage: 20 MG, QMO
     Route: 058

REACTIONS (5)
  - Pain [Recovered/Resolved]
  - Headache [Recovered/Resolved]
  - Pain in extremity [Not Recovered/Not Resolved]
  - Musculoskeletal stiffness [Not Recovered/Not Resolved]
  - Type 2 diabetes mellitus [Unknown]

NARRATIVE: CASE EVENT DATE: 20221101
